FAERS Safety Report 21625405 (Version 2)
Quarter: 2023Q2

REPORT INFORMATION
  Report Type: Other
  Country: AU (occurrence: None)
  Receive Date: 20221122
  Receipt Date: 20230523
  Transmission Date: 20230721
  Serious: Yes (Other)
  Sender: FDA-Public Use
  Company Number: AU-ROCHE-3219379

PATIENT
  Sex: Female

DRUGS (1)
  1. OCREVUS [Suspect]
     Active Substance: OCRELIZUMAB
     Indication: Relapsing-remitting multiple sclerosis
     Route: 041
     Dates: start: 20210525

REACTIONS (3)
  - Meningitis viral [Unknown]
  - Encephalitis [Unknown]
  - B-lymphocyte count decreased [Not Recovered/Not Resolved]
